FAERS Safety Report 7946299-6 (Version None)
Quarter: 2011Q4

REPORT INFORMATION
  Report Type: 
  Country: None (occurrence: None)
  Receive Date: 20111129
  Receipt Date: 20111107
  Transmission Date: 20120403
  Serious: No
  Sender: FDA-Public Use
  Company Number: US-ROXANE LABORATORIES, INC.-2011-RO-01609RO

PATIENT
  Sex: Female

DRUGS (1)
  1. PREDNISONE TAB [Suspect]

REACTIONS (2)
  - OSTEOPENIA [None]
  - OSTEOPOROSIS [None]
